FAERS Safety Report 4316951-2 (Version None)
Quarter: 2004Q1

REPORT INFORMATION
  Report Type: 
  Country: None (occurrence: None)
  Receive Date: 20040312
  Receipt Date: 20040227
  Transmission Date: 20041129
  Serious: Yes (Death)
  Sender: FDA-Public Use
  Company Number: US-SHR-2002-000205

PATIENT
  Age: 59 Year
  Sex: Female

DRUGS (1)
  1. BETASERON (INTERFERON BETA-1B) INJECTION [Suspect]
     Indication: MULTIPLE SCLEROSIS
     Dosage: 8 MIU, EVERY 2D, SUBCUTANEOUS
     Route: 058
     Dates: start: 20000801, end: 20021201

REACTIONS (1)
  - CARDIAC ARREST [None]
